FAERS Safety Report 24752020 (Version 3)
Quarter: 2025Q3

REPORT INFORMATION
  Report Type: Report from Study
  Country: EU (occurrence: EU)
  Receive Date: 20241219
  Receipt Date: 20250917
  Transmission Date: 20251020
  Serious: Yes (Other)
  Sender: TAKEDA
  Company Number: EU-TAKEDA-2024TUS116954

PATIENT
  Age: 56 Year
  Sex: Female

DRUGS (5)
  1. HUMAN IMMUNOGLOBULIN G [Suspect]
     Active Substance: HUMAN IMMUNOGLOBULIN G
     Indication: Follicular lymphoma
  2. HUMAN IMMUNOGLOBULIN G [Suspect]
     Active Substance: HUMAN IMMUNOGLOBULIN G
  3. HUMAN IMMUNOGLOBULIN G [Suspect]
     Active Substance: HUMAN IMMUNOGLOBULIN G
  4. HUMAN IMMUNOGLOBULIN G [Suspect]
     Active Substance: HUMAN IMMUNOGLOBULIN G
     Dosage: 6 GRAM, 1/WEEK
  5. HUMAN IMMUNOGLOBULIN G [Suspect]
     Active Substance: HUMAN IMMUNOGLOBULIN G
     Dosage: 7 GRAM, 1/WEEK

REACTIONS (11)
  - Lower respiratory tract infection [Recovered/Resolved]
  - Vascular device infection [Unknown]
  - Rash vesicular [Not Recovered/Not Resolved]
  - Rash [Recovered/Resolved]
  - Discomfort [Not Recovered/Not Resolved]
  - Incorrect dose administered [Recovering/Resolving]
  - Erythema [Recovering/Resolving]
  - Burning sensation [Not Recovered/Not Resolved]
  - Infusion site swelling [Recovering/Resolving]
  - Infusion site induration [Recovering/Resolving]
  - Infusion site bruising [Recovering/Resolving]

NARRATIVE: CASE EVENT DATE: 20241112
